FAERS Safety Report 18512480 (Version 2)
Quarter: 2020Q4

REPORT INFORMATION
  Report Type: Spontaneous
  Country: US (occurrence: US)
  Receive Date: 20201117
  Receipt Date: 20201211
  Transmission Date: 20210114
  Serious: Yes (Other)
  Sender: FDA-Public Use
  Company Number: US-TEVA-2020-US-1849948

PATIENT
  Age: 61 Year
  Sex: Male

DRUGS (1)
  1. TREPROSTINIL TEVA [Suspect]
     Active Substance: TREPROSTINIL
     Indication: PULMONARY ARTERIAL HYPERTENSION
     Dosage: 30NG/KG/MIN
     Route: 042
     Dates: start: 20190621

REACTIONS (2)
  - Vascular device infection [Unknown]
  - Injection site infection [Unknown]

NARRATIVE: CASE EVENT DATE: 2020
